FAERS Safety Report 23858233 (Version 1)
Quarter: 2024Q2

REPORT INFORMATION
  Report Type: Spontaneous
  Country: CN (occurrence: CN)
  Receive Date: 20240515
  Receipt Date: 20240515
  Transmission Date: 20240716
  Serious: Yes (Hospitalization)
  Sender: FDA-Public Use
  Company Number: CN-PFIZER INC-PV202400062101

PATIENT
  Age: 21 Year
  Sex: Female
  Weight: 57 kg

DRUGS (3)
  1. METHOTREXATE SODIUM [Suspect]
     Active Substance: METHOTREXATE SODIUM
     Indication: Ectopic pregnancy
     Dosage: 50 MG, 1X/DAY
     Route: 015
     Dates: start: 20240429, end: 20240429
  2. METHOTREXATE SODIUM [Suspect]
     Active Substance: METHOTREXATE SODIUM
     Dosage: 10 MG, 1X/DAY
     Route: 030
     Dates: start: 20240430, end: 20240505
  3. MIFEPRISTONE [Concomitant]
     Active Substance: MIFEPRISTONE
     Indication: Ectopic pregnancy
     Dosage: 50 MG, 2X/DAY
     Route: 048
     Dates: start: 20240429, end: 20240505

REACTIONS (10)
  - Drug-induced liver injury [Recovering/Resolving]
  - Nausea [Recovering/Resolving]
  - Vomiting [Recovering/Resolving]
  - Rash [Recovering/Resolving]
  - Mouth ulceration [Recovering/Resolving]
  - Feeding disorder [Recovering/Resolving]
  - Conjunctival hyperaemia [Recovering/Resolving]
  - Drug ineffective for unapproved indication [Unknown]
  - Off label use [Unknown]
  - Off label use [Unknown]

NARRATIVE: CASE EVENT DATE: 20240429
